FAERS Safety Report 6149084-3 (Version None)
Quarter: 2009Q2

REPORT INFORMATION
  Report Type: 
  Country: None (occurrence: None)
  Receive Date: 20090407
  Receipt Date: 20090330
  Transmission Date: 20091009
  Serious: Yes (Death)
  Sender: FDA-Public Use
  Company Number: 2009S1004564

PATIENT
  Age: 80 Year
  Sex: Female
  Weight: 59 kg

DRUGS (5)
  1. LOSARTAN POTASSIUM [Suspect]
     Indication: ESSENTIAL HYPERTENSION
     Dosage: 50 MG;DAILY;ORAL
     Route: 048
     Dates: start: 20081113, end: 20090209
  2. INVESTIGATIONAL DRUG [Suspect]
     Dosage: ORAL
     Route: 048
     Dates: start: 20081210, end: 20090209
  3. HYDROCHLOROTHIAZIDE [Suspect]
     Indication: ESSENTIAL HYPERTENSION
     Dosage: 25 MG;DAILY;ORAL
     Route: 048
     Dates: start: 20081210, end: 20090209
  4. ATORVASTATIN [Concomitant]
  5. ACETAMINOPHEN [Concomitant]

REACTIONS (7)
  - BLOOD CREATINE INCREASED [None]
  - BLOOD TRIGLYCERIDES INCREASED [None]
  - BLOOD UREA INCREASED [None]
  - CARDIAC ARREST [None]
  - DIARRHOEA [None]
  - HYPOKALAEMIA [None]
  - VOMITING [None]
